FAERS Safety Report 7275135-9 (Version None)
Quarter: 2011Q1

REPORT INFORMATION
  Report Type: 
  Country: None (occurrence: None)
  Receive Date: 20110204
  Receipt Date: 20110124
  Transmission Date: 20110831
  Serious: Yes (Other)
  Sender: FDA-Public Use
  Company Number: PHHY2011BR06845

PATIENT
  Sex: Female

DRUGS (2)
  1. DIOVAN HCT [Suspect]
     Dosage: 160/25 MG, UNK
  2. DIOVAN HCT [Suspect]
     Dosage: 160/5  MG, ONE TABLET, DAILY

REACTIONS (2)
  - DIABETES MELLITUS [None]
  - OEDEMA PERIPHERAL [None]
